FAERS Safety Report 8772169 (Version 1)
Quarter: 2012Q4

REPORT INFORMATION
  Report Type: 
  Country: US (occurrence: US)
  Receive Date: 20120905
  Receipt Date: 20120905
  Transmission Date: 20130627
  Serious: Yes (Hospitalization, Other)
  Sender: FDA-Public Use
  Company Number: US-PFIZER INC-2012214185

PATIENT
  Age: 86 Year
  Sex: Female
  Weight: 39.46 kg

DRUGS (2)
  1. REVATIO [Suspect]
     Indication: PULMONARY HYPERTENSION
     Dosage: 20 mg, 3x/day
     Dates: start: 201202
  2. AMARYL [Concomitant]
     Indication: DIABETES MELLITUS
     Dosage: half a tablet, daily

REACTIONS (2)
  - Fall [Unknown]
  - Pain [Unknown]
